FAERS Safety Report 20516958 (Version 1)
Quarter: 2022Q1

REPORT INFORMATION
  Report Type: Spontaneous
  Country: ZA (occurrence: ZA)
  Receive Date: 20220225
  Receipt Date: 20220225
  Transmission Date: 20220423
  Serious: Yes (Hospitalization, Other)
  Sender: FDA-Public Use
  Company Number: ZA-NOVOPROD-893006

PATIENT
  Age: 53 Year
  Sex: Male

DRUGS (2)
  1. NOVORAPID [Suspect]
     Active Substance: INSULIN ASPART
     Indication: Product used for unknown indication
     Dosage: 26 IU, BID
     Route: 065
  2. LEVEMIR [Suspect]
     Active Substance: INSULIN DETEMIR
     Indication: Product used for unknown indication
     Dosage: 26 IU, QD
     Route: 065

REACTIONS (4)
  - Diabetic ketoacidosis [Unknown]
  - Hospitalisation [Unknown]
  - Hypoglycaemia [Unknown]
  - Diabetes mellitus inadequate control [Unknown]
